FAERS Safety Report 6370268-3 (Version None)
Quarter: 2009Q3

REPORT INFORMATION
  Report Type: 
  Country: None (occurrence: None)
  Receive Date: 20090918
  Receipt Date: 20090911
  Transmission Date: 20100115
  Serious: Yes (Other)
  Sender: FDA-Public Use
  Company Number: CHPA2009US18571

PATIENT
  Age: 38 Year
  Sex: Female

DRUGS (1)
  1. FERROUS SULFATE TAB [Suspect]
     Dosage: 320 MG, QD, ORAL; 160 MG, QD, ORAL
     Route: 048
     Dates: start: 20050101

REACTIONS (2)
  - COLECTOMY [None]
  - ILL-DEFINED DISORDER [None]
